FAERS Safety Report 4631834-6 (Version None)
Quarter: 2005Q2

REPORT INFORMATION
  Report Type: 
  Country: None (occurrence: None)
  Receive Date: 20050411
  Receipt Date: 20050330
  Transmission Date: 20051028
  Serious: Yes (Hospitalization)
  Sender: FDA-Public Use
  Company Number: JP-JNJFOC-20041200606

PATIENT
  Sex: Female
  Weight: 58 kg

DRUGS (21)
  1. REMICADE [Suspect]
     Route: 042
  2. REMICADE [Suspect]
     Route: 042
  3. REMICADE [Suspect]
     Route: 042
  4. REMICADE [Suspect]
     Route: 042
  5. REMICADE [Suspect]
     Indication: RHEUMATOID ARTHRITIS
     Route: 042
  6. PREDONINE [Suspect]
     Route: 049
  7. PREDONINE [Suspect]
     Route: 049
  8. PREDONINE [Suspect]
     Route: 049
  9. PREDONINE [Suspect]
     Indication: DRUG USE FOR UNKNOWN INDICATION
     Route: 049
  10. METHOTREXATE [Suspect]
  11. METHOTREXATE [Suspect]
  12. METHOTREXATE [Suspect]
  13. METHOTREXATE [Suspect]
     Indication: DRUG USE FOR UNKNOWN INDICATION
  14. INH [Concomitant]
     Route: 049
  15. VOLTAREN [Concomitant]
     Route: 049
  16. FOLIAMIN [Concomitant]
     Route: 049
  17. CYTOTEC [Concomitant]
     Route: 049
  18. ONEALFA [Concomitant]
     Route: 049
  19. PYDOXAL [Concomitant]
  20. JUVERA N [Concomitant]
     Route: 049
  21. MAGNESIUM OXIDE [Concomitant]
     Route: 049

REACTIONS (2)
  - ASPARTATE AMINOTRANSFERASE INCREASED [None]
  - HERPES ZOSTER [None]
